FAERS Safety Report 19035514 (Version 2)
Quarter: 2022Q1

REPORT INFORMATION
  Report Type: Report from Study
  Country: US (occurrence: US)
  Receive Date: 20210320
  Receipt Date: 20220203
  Transmission Date: 20220424
  Serious: Yes (Hospitalization, Other)
  Sender: FDA-Public Use
  Company Number: US-TAKEDA-US201821201

PATIENT
  Age: 71 Year
  Sex: Male
  Weight: 95.238 kg

DRUGS (9)
  1. TEDUGLUTIDE [Suspect]
     Active Substance: TEDUGLUTIDE
     Indication: Short-bowel syndrome
     Dosage: STUDY DRUG NOT ADMINISTERED
     Route: 065
  2. TEDUGLUTIDE [Suspect]
     Active Substance: TEDUGLUTIDE
     Indication: Short-bowel syndrome
     Dosage: STUDY DRUG NOT ADMINISTERED
     Route: 065
  3. TEDUGLUTIDE [Suspect]
     Active Substance: TEDUGLUTIDE
     Indication: Short-bowel syndrome
     Dosage: STUDY DRUG NOT ADMINISTERED
     Route: 065
  4. TEDUGLUTIDE [Suspect]
     Active Substance: TEDUGLUTIDE
     Indication: Short-bowel syndrome
     Dosage: STUDY DRUG NOT ADMINISTERED
     Route: 065
  5. CREON [Concomitant]
     Active Substance: PANCRELIPASE AMYLASE\PANCRELIPASE LIPASE\PANCRELIPASE PROTEASE
     Indication: Fatty acid deficiency
     Dosage: 24000 UNITS
     Route: 048
     Dates: start: 20180328
  6. IMODIUM [Concomitant]
     Active Substance: LOPERAMIDE HYDROCHLORIDE
     Indication: Short-bowel syndrome
     Dosage: 4 MILLIGRAM
     Route: 048
     Dates: start: 20171004
  7. ELAVIL                             /00002202/ [Concomitant]
     Indication: Malabsorption
     Dosage: 25 MILLIGRAM
     Route: 048
     Dates: start: 20171004
  8. CARAFATE [Concomitant]
     Active Substance: SUCRALFATE
     Indication: Short-bowel syndrome
     Dosage: 1 GRAM, QID
     Route: 048
     Dates: start: 20170620
  9. FERROUS SULFATE [Concomitant]
     Active Substance: FERROUS SULFATE
     Indication: Malnutrition
     Dosage: 325 MILLIGRAM, QD
     Route: 048
     Dates: start: 20161111

REACTIONS (3)
  - Device issue [Recovered/Resolved]
  - Renal failure [Recovered/Resolved with Sequelae]
  - Liver function test increased [Recovered/Resolved]

NARRATIVE: CASE EVENT DATE: 20180426
